FAERS Safety Report 9895286 (Version 1)
Quarter: 2014Q1

REPORT INFORMATION
  Report Type: Spontaneous
  Country: US (occurrence: US)
  Receive Date: 20140213
  Receipt Date: 20140213
  Transmission Date: 20141002
  Serious: No
  Sender: FDA-Public Use
  Company Number: US-BRISTOL-MYERS SQUIBB COMPANY-18719831

PATIENT
  Age: 65 Year
  Sex: Female
  Weight: 74.83 kg

DRUGS (14)
  1. ABATACEPT SUBQ INJECTION 125MG/ML [Suspect]
     Indication: RHEUMATOID ARTHRITIS
     Route: 058
     Dates: start: 201212, end: 2013
  2. WELCHOL [Concomitant]
  3. VITAMIN D [Concomitant]
  4. VITAMIN B [Concomitant]
  5. TRAMADOL [Concomitant]
  6. PREDNISONE [Concomitant]
  7. METFORMIN [Concomitant]
  8. LISINOPRIL [Concomitant]
  9. LEFLUNOMIDE [Concomitant]
  10. IBUPROFEN [Concomitant]
  11. FISH OIL [Concomitant]
  12. ETODOLAC [Concomitant]
  13. CENTRUM [Concomitant]
  14. CALCIUM [Concomitant]

REACTIONS (1)
  - Pain in extremity [Unknown]
